FAERS Safety Report 15061561 (Version 3)
Quarter: 2018Q4

REPORT INFORMATION
  Report Type: Spontaneous
  Country: US (occurrence: US)
  Receive Date: 20180625
  Receipt Date: 20181031
  Transmission Date: 20190204
  Serious: Yes (Other)
  Sender: FDA-Public Use
  Company Number: US-TEVA-2018-US-912430

PATIENT
  Age: 69 Year
  Sex: Female
  Weight: 49.94 kg

DRUGS (1)
  1. CISPLATIN TEVA [Suspect]
     Active Substance: CISPLATIN
     Indication: HEAD AND NECK CANCER
     Dates: start: 20180109, end: 20180226

REACTIONS (2)
  - Herpes zoster [Unknown]
  - Deafness [Unknown]

NARRATIVE: CASE EVENT DATE: 20180404
